FAERS Safety Report 18497871 (Version 1)
Quarter: 2020Q4

REPORT INFORMATION
  Report Type: Spontaneous
  Country: US (occurrence: US)
  Receive Date: 20201112
  Receipt Date: 20201112
  Transmission Date: 20210114
  Serious: No
  Sender: FDA-Public Use
  Company Number: US-THERAPEUTICSMD-2020TMD04687

PATIENT
  Sex: Female

DRUGS (1)
  1. BIJUVA [Suspect]
     Active Substance: ESTRADIOL\PROGESTERONE
     Indication: VULVOVAGINAL DRYNESS
     Dosage: 1/100 MG
     Dates: end: 202010

REACTIONS (2)
  - Off label use [Recovered/Resolved]
  - Breast tenderness [Recovered/Resolved]
